FAERS Safety Report 10645353 (Version 2)
Quarter: 2015Q1

REPORT INFORMATION
  Report Type: Report from Study
  Country: US (occurrence: US)
  Receive Date: 20141211
  Receipt Date: 20150317
  Transmission Date: 20150720
  Serious: Yes (Hospitalization)
  Sender: FDA-Public Use
  Company Number: PHEH2014US024587

PATIENT
  Sex: Female

DRUGS (2)
  1. AFINITOR [Suspect]
     Active Substance: EVEROLIMUS
     Indication: BREAST CANCER
     Dosage: 10 MG, QD
     Route: 048
  2. AFINITOR [Suspect]
     Active Substance: EVEROLIMUS
     Dosage: 5 UNK, UNK
     Route: 048

REACTIONS (9)
  - Constipation [Unknown]
  - Blood calcium increased [Unknown]
  - Oedema [Unknown]
  - Pain in extremity [Unknown]
  - Condition aggravated [Not Recovered/Not Resolved]
  - Pain [Unknown]
  - Neuropathy peripheral [Unknown]
  - Oedema peripheral [Not Recovered/Not Resolved]
  - Red blood cell count decreased [Unknown]
